FAERS Safety Report 7558433-0 (Version None)
Quarter: 2011Q2

REPORT INFORMATION
  Report Type: 
  Country: None (occurrence: None)
  Receive Date: 20110620
  Receipt Date: 20110614
  Transmission Date: 20111010
  Serious: Yes (Hospitalization)
  Sender: FDA-Public Use
  Company Number: JP-ABBOTT-11P-087-0731015-00

PATIENT
  Sex: Female
  Weight: 46.7 kg

DRUGS (11)
  1. ALLEGRA [Concomitant]
     Indication: UPPER RESPIRATORY TRACT INFLAMMATION
     Route: 048
     Dates: start: 20110526, end: 20110529
  2. TIENAM (IMIPENEM HYDRATE/CILASTATIN SODIUM) [Suspect]
     Indication: UPPER RESPIRATORY TRACT INFLAMMATION
     Route: 042
     Dates: start: 20110527, end: 20110527
  3. LORFENAMIN [Concomitant]
     Indication: UPPER RESPIRATORY TRACT INFLAMMATION
     Route: 048
     Dates: start: 20110526, end: 20110529
  4. HUSCODE [Concomitant]
     Indication: UPPER RESPIRATORY TRACT INFLAMMATION
     Dates: start: 20110526, end: 20110529
  5. CLARITHROMYCIN [Suspect]
     Indication: UPPER RESPIRATORY TRACT INFLAMMATION
     Route: 048
     Dates: start: 20110526, end: 20110529
  6. MUCOSIL-10 [Concomitant]
     Indication: UPPER RESPIRATORY TRACT INFLAMMATION
     Route: 048
     Dates: start: 20110526, end: 20110529
  7. NAUZELIN [Concomitant]
     Indication: ENTEROCOLITIS
     Route: 048
     Dates: start: 20110528, end: 20110529
  8. CELESTAMINE TAB [Concomitant]
     Indication: ERYTHEMA MULTIFORME
     Route: 048
     Dates: start: 20110528, end: 20110529
  9. BIOFORMIN [Concomitant]
     Indication: ENTEROCOLITIS
     Route: 048
     Dates: start: 20110528, end: 20110529
  10. GARENOXACIN MESYLATE [Suspect]
     Indication: UPPER RESPIRATORY TRACT INFLAMMATION
     Route: 048
     Dates: start: 20110527, end: 20110528
  11. PYRINAZIN [Concomitant]
     Indication: UPPER RESPIRATORY TRACT INFLAMMATION
     Route: 048
     Dates: start: 20110526, end: 20110529

REACTIONS (4)
  - ERYTHEMA MULTIFORME [None]
  - STEVENS-JOHNSON SYNDROME [None]
  - CHOLECYSTITIS [None]
  - HEPATIC FUNCTION ABNORMAL [None]
